FAERS Safety Report 18273596 (Version 1)
Quarter: 2020Q3

REPORT INFORMATION
  Report Type: Spontaneous
  Country: JP (occurrence: JP)
  Receive Date: 20200916
  Receipt Date: 20200916
  Transmission Date: 20201103
  Serious: Yes (Other)
  Sender: FDA-Public Use
  Company Number: JP-PFIZER INC-2020356061

PATIENT
  Age: 9 Year
  Sex: Female

DRUGS (4)
  1. ZARONTIN [Suspect]
     Active Substance: ETHOSUXIMIDE
     Indication: EPILEPSY
  2. SELENICA R [Concomitant]
     Active Substance: VALPROATE SODIUM
  3. MYSTAN [Concomitant]
     Active Substance: CLOBAZAM
  4. E KEPPRA [Concomitant]
     Active Substance: LEVETIRACETAM

REACTIONS (1)
  - Cerebellar atrophy [Not Recovered/Not Resolved]
